FAERS Safety Report 6277400-0 (Version None)
Quarter: 2009Q3

REPORT INFORMATION
  Report Type: 
  Country: None (occurrence: None)
  Receive Date: 20090722
  Receipt Date: 20090506
  Transmission Date: 20100115
  Serious: No
  Sender: FDA-Public Use
  Company Number: US-BRISTOL-MYERS SQUIBB COMPANY-14618185

PATIENT
  Age: 46 Year
  Sex: Female

DRUGS (2)
  1. COUMADIN [Suspect]
  2. LOVENOX [Suspect]
     Indication: DEEP VEIN THROMBOSIS
     Dosage: INJ. 100MG QD :18APR09-21APR09,DURATION:3D 80MG BID :22APR09-CONTINUES 80 MG FROM 100MG SYRINGE
     Dates: start: 20090418

REACTIONS (2)
  - ABDOMINAL PAIN [None]
  - DYSGEUSIA [None]
